FAERS Safety Report 8956497 (Version 2)
Quarter: 2012Q4

REPORT INFORMATION
  Report Type: 
  Country: US (occurrence: US)
  Receive Date: 20121210
  Receipt Date: 20121212
  Transmission Date: 20130627
  Serious: Yes (Hospitalization)
  Sender: FDA-Public Use
  Company Number: US-PFIZER INC-2012308471

PATIENT
  Age: 76 Year
  Sex: Female
  Weight: 85.71 kg

DRUGS (7)
  1. LYRICA [Suspect]
     Indication: NEUROPATHY PERIPHERAL
     Dosage: 100 mg, 1x/day
     Route: 048
     Dates: start: 2012
  2. LYRICA [Suspect]
     Indication: PARAESTHESIA FOOT
  3. METFORMIN [Concomitant]
     Indication: DIABETES
     Dosage: 1000 mg, 2x/day
  4. GLIMEPIRIDE [Concomitant]
     Indication: DIABETES
     Dosage: 4 mg, 1x/day
  5. JANUVIA [Concomitant]
     Indication: DIABETES
     Dosage: UNK, 1x/day
  6. VYTORIN [Concomitant]
     Dosage: UNK, 1x/day
  7. LOSARTAN [Concomitant]
     Indication: DIURETIC THERAPY
     Dosage: UNK, 1x/day

REACTIONS (5)
  - Cough [Unknown]
  - Oedema peripheral [Unknown]
  - Erythema [Unknown]
  - Infection [Unknown]
  - Thrombosis [Unknown]
